FAERS Safety Report 8493435-1 (Version None)
Quarter: 2012Q3

REPORT INFORMATION
  Report Type: 
  Country: None (occurrence: None)
  Receive Date: 20120706
  Receipt Date: 20120622
  Transmission Date: 20120928
  Serious: Yes (Hospitalization, Other)
  Sender: FDA-Public Use
  Company Number: US-WATSON-2012-11061

PATIENT
  Sex: Male
  Weight: 117 kg

DRUGS (7)
  1. PROPOFOL [Concomitant]
     Indication: SEDATIVE THERAPY
     Dosage: 150 MG, SINGLE
     Route: 042
     Dates: start: 20120503, end: 20120503
  2. ANCEF                              /00288502/ [Concomitant]
     Indication: INFECTION PROPHYLAXIS
     Dosage: 1000 MG
     Route: 042
     Dates: start: 20120503, end: 20120503
  3. CARBOCAINE [Concomitant]
     Indication: ANAESTHESIA
     Dosage: 0.5 %, (890 MG, CONT'D)
     Route: 058
     Dates: start: 20120503, end: 20120504
  4. NORCO [Suspect]
     Indication: PROCEDURAL PAIN
     Dosage: UNK
     Route: 048
     Dates: start: 20120503, end: 20120504
  5. VERSED [Concomitant]
     Indication: SEDATIVE THERAPY
     Dosage: 5 MG, SINGLE
     Route: 042
     Dates: start: 20120503, end: 20120503
  6. NAROPIN [Concomitant]
     Indication: ANAESTHESIA
     Dosage: 0.5 %, 40 ML ,ONCE
     Route: 058
     Dates: start: 20120503, end: 20120504
  7. LIDOCAINE [Concomitant]
     Indication: LOCAL ANAESTHESIA
     Dosage: 2 %, 25 ML
     Route: 058
     Dates: start: 20120503, end: 20120503

REACTIONS (5)
  - HYPERHIDROSIS [None]
  - DIZZINESS [None]
  - LETHARGY [None]
  - SYNCOPE [None]
  - NAUSEA [None]
